FAERS Safety Report 22654339 (Version 1)
Quarter: 2023Q2

REPORT INFORMATION
  Report Type: Spontaneous
  Country: CN (occurrence: None)
  Receive Date: 20230629
  Receipt Date: 20230629
  Transmission Date: 20230722
  Serious: Yes (Other)
  Sender: FDA-Public Use
  Company Number: 2023A147207

PATIENT
  Age: 44 Year
  Sex: Male
  Weight: 79 kg

DRUGS (4)
  1. DAPAGLIFLOZIN [Suspect]
     Active Substance: DAPAGLIFLOZIN
     Indication: Hyperglycaemia
     Route: 048
     Dates: start: 20230612, end: 20230616
  2. DAPAGLIFLOZIN [Suspect]
     Active Substance: DAPAGLIFLOZIN
     Indication: Glucose urine present
     Route: 048
     Dates: start: 20230612, end: 20230616
  3. INSULIN GLARGINE [Suspect]
     Active Substance: INSULIN GLARGINE
     Indication: Hyperglycaemia
     Dosage: 10 UNITS BEFORE SLEEP
     Route: 058
     Dates: end: 20230615
  4. INSULIN LISPRO [Suspect]
     Active Substance: INSULIN LISPRO
     Indication: Hyperglycaemia
     Dosage: 5 UNITS BEFORE BREAKFAST, 4 UNITS BEFORE LUNCH, 4 UNITS BEFORE DINNER
     Dates: end: 20230615

REACTIONS (3)
  - Pruritus [Recovering/Resolving]
  - Drug hypersensitivity [Unknown]
  - Rash [Recovering/Resolving]

NARRATIVE: CASE EVENT DATE: 20230614
